FAERS Safety Report 7217401-9 (Version None)
Quarter: 2011Q1

REPORT INFORMATION
  Report Type: 
  Country: None (occurrence: None)
  Receive Date: 20110110
  Receipt Date: 20101228
  Transmission Date: 20110831
  Serious: Yes (Other)
  Sender: FDA-Public Use
  Company Number: PHHY2010JP82048

PATIENT
  Age: 55 Year
  Sex: Male

DRUGS (1)
  1. CO-DIOVAN [Suspect]
     Dosage: 1 DF DAILY
     Route: 048

REACTIONS (1)
  - PNEUMONIA [None]
